FAERS Safety Report 16172270 (Version 3)
Quarter: 2019Q2

REPORT INFORMATION
  Report Type: Spontaneous
  Country: JP (occurrence: JP)
  Receive Date: 20190409
  Receipt Date: 20190619
  Transmission Date: 20190711
  Serious: Yes (Death, Other)
  Sender: FDA-Public Use
  Company Number: JP-BRISTOL-MYERS SQUIBB COMPANY-BMS-2019-034125

PATIENT
  Age: 71 Year
  Sex: Male
  Weight: 39 kg

DRUGS (8)
  1. OPDIVO [Suspect]
     Active Substance: NIVOLUMAB
     Indication: PRODUCT USED FOR UNKNOWN INDICATION
     Dosage: 134 MILLIGRAM
     Route: 041
     Dates: start: 20171020, end: 20171020
  2. OPDIVO [Suspect]
     Active Substance: NIVOLUMAB
     Indication: PRODUCT USED FOR UNKNOWN INDICATION
     Dosage: 131 MILLIGRAM
     Route: 041
     Dates: start: 20171102, end: 20171102
  3. OPDIVO [Suspect]
     Active Substance: NIVOLUMAB
     Indication: PRODUCT USED FOR UNKNOWN INDICATION
     Dosage: 138 MILLIGRAM
     Route: 041
     Dates: start: 20170922, end: 20171006
  4. OPDIVO [Suspect]
     Active Substance: NIVOLUMAB
     Indication: PRODUCT USED FOR UNKNOWN INDICATION
     Dosage: 123 MILLIGRAM
     Route: 041
     Dates: start: 20171201, end: 20171201
  5. OPDIVO [Suspect]
     Active Substance: NIVOLUMAB
     Indication: PRODUCT USED FOR UNKNOWN INDICATION
     Dosage: 130 MILLIGRAM
     Route: 041
     Dates: start: 20171117, end: 20171117
  6. OPDIVO [Suspect]
     Active Substance: NIVOLUMAB
     Indication: PRODUCT USED FOR UNKNOWN INDICATION
     Dosage: 116 MILLIGRAM
     Route: 041
     Dates: start: 20180105, end: 20180105
  7. OPDIVO [Suspect]
     Active Substance: NIVOLUMAB
     Indication: HEAD AND NECK CANCER
     Dosage: 135 MILLIGRAM
     Route: 041
     Dates: start: 20170907, end: 20170907
  8. OPDIVO [Suspect]
     Active Substance: NIVOLUMAB
     Indication: PRODUCT USED FOR UNKNOWN INDICATION
     Dosage: 125 MILLIGRAM
     Route: 041
     Dates: start: 20171215, end: 20171215

REACTIONS (1)
  - Death [Fatal]

NARRATIVE: CASE EVENT DATE: 20180109
